FAERS Safety Report 9246864 (Version 1)
Quarter: 2013Q2

REPORT INFORMATION
  Report Type: Spontaneous
  Country: CA (occurrence: CA)
  Receive Date: 20130422
  Receipt Date: 20130422
  Transmission Date: 20140414
  Serious: Yes (Other)
  Sender: FDA-Public Use
  Company Number: CA-GLAXOSMITHKLINE-A0987601A

PATIENT
  Sex: Female

DRUGS (2)
  1. FLOLAN [Suspect]
     Indication: PRODUCT USED FOR UNKNOWN INDICATION
     Route: 065
  2. FLOLAN DILUENT [Suspect]
     Indication: PRODUCT USED FOR UNKNOWN INDICATION
     Route: 065

REACTIONS (13)
  - Anaphylactic reaction [Unknown]
  - Throat irritation [Unknown]
  - Cough [Unknown]
  - Dyspnoea [Unknown]
  - Pruritus [Unknown]
  - Lacrimation increased [Unknown]
  - Dysgeusia [Unknown]
  - Bronchospasm [Unknown]
  - Tremor [Unknown]
  - Feeling hot [Unknown]
  - Headache [Unknown]
  - Product quality issue [Unknown]
  - Hypersensitivity [Unknown]
